FAERS Safety Report 9466962 (Version 1)
Quarter: 2013Q3

REPORT INFORMATION
  Report Type: Spontaneous
  Country: US (occurrence: US)
  Receive Date: 20130820
  Receipt Date: 20130820
  Transmission Date: 20140515
  Serious: Yes (Hospitalization, Other)
  Sender: FDA-Public Use
  Company Number: US-PFIZER INC-2013237320

PATIENT
  Age: 72 Year
  Sex: Male

DRUGS (10)
  1. XELJANZ [Suspect]
     Indication: RHEUMATOID ARTHRITIS
     Dosage: 5 MG, 2X/DAY
     Route: 048
     Dates: start: 201306, end: 20130802
  2. XELJANZ [Suspect]
     Dosage: 5 MG, 2X/DAY
     Route: 048
     Dates: start: 20130804
  3. FOLIC ACID [Concomitant]
     Dosage: 1 MG, UNK
  4. LISINOPRIL [Concomitant]
     Dosage: 2.5 MG, UNK
  5. DOXYCYCLINE HYCLATE [Concomitant]
     Dosage: 100 MG, UNK
  6. RANITIDINE [Concomitant]
     Dosage: 150 MG, UNK
  7. BRILINTA [Concomitant]
     Dosage: 90 MG, UNK
  8. CRESTOR [Concomitant]
     Dosage: 40 MG, UNK
  9. BYSTOLIC [Concomitant]
     Dosage: 2.5 MG, UNK
  10. ASPIRIN [Concomitant]
     Dosage: 81 MG, UNK

REACTIONS (4)
  - Myocardial infarction [Unknown]
  - Chest discomfort [Unknown]
  - Electrocardiogram abnormal [Unknown]
  - Platelet count decreased [Unknown]
